FAERS Safety Report 20149704 (Version 1)
Quarter: 2021Q4

REPORT INFORMATION
  Report Type: Spontaneous
  Country: US (occurrence: US)
  Receive Date: 20211206
  Receipt Date: 20211206
  Transmission Date: 20220303
  Serious: Yes (Hospitalization, Other)
  Sender: FDA-Public Use
  Company Number: US-AMGEN-USASP2021190477

PATIENT
  Age: 56 Year
  Sex: Female

DRUGS (2)
  1. OTEZLA [Suspect]
     Active Substance: APREMILAST
     Indication: Psoriasis
     Dosage: 30 MILLIGRAM, BID
     Route: 048
     Dates: start: 202104
  2. GELSYN 3 [Concomitant]
     Dosage: UNK (PFS, 16.8MG/2ML)
     Route: 065
     Dates: start: 20211019, end: 20211019

REACTIONS (2)
  - Ligament rupture [Unknown]
  - Fall [Unknown]

NARRATIVE: CASE EVENT DATE: 20210101
